FAERS Safety Report 6055694-4 (Version None)
Quarter: 2009Q1

REPORT INFORMATION
  Report Type: 
  Country: None (occurrence: None)
  Receive Date: 20090126
  Receipt Date: 20090109
  Transmission Date: 20090719
  Serious: Yes (Other)
  Sender: FDA-Public Use
  Company Number: B0554871A

PATIENT
  Age: 66 Year
  Sex: Male

DRUGS (2)
  1. AMOXICILLIN TRIHYDRATE [Suspect]
     Indication: HAEMOPHILUS INFECTION
  2. CEFUROXIME SODIUM [Suspect]

REACTIONS (4)
  - HAEMOPHILUS BACTERAEMIA [None]
  - OSTEOMYELITIS [None]
  - PATHOGEN RESISTANCE [None]
  - TREATMENT FAILURE [None]
